FAERS Safety Report 10563820 (Version 2)
Quarter: 2014Q4

REPORT INFORMATION
  Report Type: Report from Study
  Country: US (occurrence: US)
  Receive Date: 20141104
  Receipt Date: 20141209
  Transmission Date: 20150529
  Serious: Yes (Other)
  Sender: FDA-Public Use
  Company Number: PHEH2014US021695

PATIENT
  Sex: Female

DRUGS (1)
  1. TOBI [Suspect]
     Active Substance: TOBRAMYCIN
     Indication: PSEUDOMONAS INFECTION
     Dosage: 300 MG, BID
     Route: 055

REACTIONS (5)
  - General physical health deterioration [Unknown]
  - Muscular dystrophy [Unknown]
  - Malaise [Unknown]
  - Drug ineffective [Unknown]
  - Pseudomonas infection [Not Recovered/Not Resolved]
